FAERS Safety Report 6695665-8 (Version None)
Quarter: 2010Q2

REPORT INFORMATION
  Report Type: 
  Country: None (occurrence: None)
  Receive Date: 20100426
  Receipt Date: 20100415
  Transmission Date: 20101027
  Serious: No
  Sender: FDA-Public Use
  Company Number: US-BIOGENIDEC-2010BI012626

PATIENT
  Age: 26 Year
  Sex: Female

DRUGS (4)
  1. AVONEX [Suspect]
     Indication: MULTIPLE SCLEROSIS
     Route: 030
     Dates: start: 20010101, end: 20030101
  2. AVONEX [Suspect]
     Route: 030
     Dates: start: 20030101
  3. NEXIUM [Concomitant]
     Indication: PEPTIC ULCER
  4. ZANTAC [Concomitant]
     Indication: PEPTIC ULCER

REACTIONS (9)
  - ANXIETY [None]
  - CONSTIPATION [None]
  - DEPRESSION [None]
  - EXOSTOSIS [None]
  - FALL [None]
  - HYPOAESTHESIA [None]
  - MUSCLE TIGHTNESS [None]
  - NERVE COMPRESSION [None]
  - PAIN [None]
